FAERS Safety Report 20935044 (Version 4)
Quarter: 2022Q4

REPORT INFORMATION
  Report Type: Spontaneous
  Country: US (occurrence: US)
  Receive Date: 20220608
  Receipt Date: 20221123
  Transmission Date: 20230113
  Serious: Yes (Other)
  Sender: FDA-Public Use
  Company Number: US-Blueprint Medicines Corporation-159

PATIENT
  Sex: Male

DRUGS (3)
  1. AYVAKIT [Suspect]
     Active Substance: AVAPRITINIB
     Indication: Gastrointestinal stromal tumour
     Route: 048
     Dates: start: 20220316
  2. AYVAKIT [Suspect]
     Active Substance: AVAPRITINIB
     Route: 048
     Dates: start: 20220316
  3. AYVAKIT [Suspect]
     Active Substance: AVAPRITINIB
     Route: 065
     Dates: start: 20220316

REACTIONS (10)
  - Renal impairment [Recovered/Resolved]
  - Chromaturia [Unknown]
  - Blood urine present [Unknown]
  - Appetite disorder [Unknown]
  - Fatigue [Unknown]
  - Nausea [Unknown]
  - Weight decreased [Unknown]
  - Decreased appetite [Unknown]
  - Ageusia [Unknown]
  - Product dose omission issue [Unknown]
